FAERS Safety Report 7326721-9 (Version None)
Quarter: 2011Q1

REPORT INFORMATION
  Report Type: 
  Country: None (occurrence: None)
  Receive Date: 20110302
  Receipt Date: 20100223
  Transmission Date: 20110831
  Serious: No
  Sender: FDA-Public Use
  Company Number: US-PFIZER INC-2003120042

PATIENT
  Sex: Female
  Weight: 51.71 kg

DRUGS (9)
  1. VFEND [Suspect]
     Indication: FUNGAL INFECTION
     Route: 048
     Dates: start: 20031106, end: 20031101
  2. ORAL CONTRACEPTIVE NOS [Concomitant]
     Route: 065
  3. IRON [Concomitant]
     Route: 065
  4. ESCITALOPRAM [Concomitant]
     Route: 048
  5. MEXILETINE HYDROCHLORIDE [Concomitant]
     Route: 048
  6. DEMULEN 1/35-21 [Concomitant]
     Route: 048
  7. MAGNESIUM [Concomitant]
     Route: 048
     Dates: start: 20031106
  8. VFEND [Suspect]
     Indication: ASPERGILLOSIS
  9. ROCEPHIN [Concomitant]
     Route: 065
     Dates: start: 20031104, end: 20031105

REACTIONS (7)
  - FEELING ABNORMAL [None]
  - VISUAL IMPAIRMENT [None]
  - IMPAIRED DRIVING ABILITY [None]
  - VISUAL FIELD DEFECT [None]
  - BLINDNESS [None]
  - ACTIVITIES OF DAILY LIVING IMPAIRED [None]
  - ABASIA [None]
